FAERS Safety Report 6528015-8 (Version None)
Quarter: 2009Q4

REPORT INFORMATION
  Report Type: 
  Country: None (occurrence: None)
  Receive Date: 20091222
  Receipt Date: 20090921
  Transmission Date: 20100525
  Serious: No
  Sender: FDA-Public Use
  Company Number: ALL1-2009-02796

PATIENT
  Age: 7 Year
  Sex: Male
  Weight: 23.6 kg

DRUGS (5)
  1. VYVANSE [Suspect]
     Indication: ATTENTION DEFICIT/HYPERACTIVITY DISORDER
     Dosage: 30 MG, 1X/DAY:QD, ORAL ; 20 MG, 1X/DAY:QD, ORAL
     Route: 048
     Dates: start: 20080101, end: 20080601
  2. VYVANSE [Suspect]
     Indication: ATTENTION DEFICIT/HYPERACTIVITY DISORDER
     Dosage: 30 MG, 1X/DAY:QD, ORAL ; 20 MG, 1X/DAY:QD, ORAL
     Route: 048
     Dates: start: 20090601
  3. SINGULAIR /01362601/ (MONTELUKAST) TABLET [Concomitant]
     Indication: ASTHMA
     Dosage: 4 MG, 1X/DAY:QD, ORAL ; 5 MG, 1X/DAY:QD, ORAL
     Route: 048
     Dates: start: 20060101, end: 20070101
  4. SINGULAIR /01362601/ (MONTELUKAST) TABLET [Concomitant]
     Indication: ASTHMA
     Dosage: 4 MG, 1X/DAY:QD, ORAL ; 5 MG, 1X/DAY:QD, ORAL
     Route: 048
     Dates: start: 20070101
  5. CYPROHEPATADINE (CYPROHEPTADINE) [Concomitant]

REACTIONS (10)
  - AGGRESSION [None]
  - DECREASED APPETITE [None]
  - DISTURBANCE IN ATTENTION [None]
  - EDUCATIONAL PROBLEM [None]
  - FEELING ABNORMAL [None]
  - IMPULSIVE BEHAVIOUR [None]
  - IRRITABILITY [None]
  - MOOD ALTERED [None]
  - PALLOR [None]
  - SOCIAL AVOIDANT BEHAVIOUR [None]
